FAERS Safety Report 7264128-3 (Version None)
Quarter: 2011Q1

REPORT INFORMATION
  Report Type: 
  Country: None (occurrence: None)
  Receive Date: 20110131
  Receipt Date: 20110124
  Transmission Date: 20110831
  Serious: Yes (Other)
  Sender: FDA-Public Use
  Company Number: GB-PFIZER INC-2010129666

PATIENT

DRUGS (2)
  1. EPANUTIN [Suspect]
     Dosage: 400 MG, 1X/DAY
  2. DARUNAVIR [Interacting]
     Indication: HIV TEST POSITIVE

REACTIONS (1)
  - DRUG INTERACTION [None]
